FAERS Safety Report 20904906 (Version 1)
Quarter: 2022Q2

REPORT INFORMATION
  Report Type: Spontaneous
  Country: US (occurrence: US)
  Receive Date: 20220602
  Receipt Date: 20220602
  Transmission Date: 20220721
  Serious: No
  Sender: FDA-Public Use
  Company Number: US-009507513-2205USA006053

PATIENT
  Age: 62 Year
  Sex: Male

DRUGS (3)
  1. MOLNUPIRAVIR [Suspect]
     Active Substance: MOLNUPIRAVIR
     Indication: COVID-19 treatment
     Dosage: ONE 200MG PILL EVERY 3 HOURS (ALSO REPORTED AS 4 PILLS EVERY 12 HOURS)
     Route: 048
     Dates: start: 20220517, end: 20220518
  2. VITAMIN A [Concomitant]
     Active Substance: VITAMIN A
     Dosage: UNK, ONCE PER DAY (DAILY)
  3. CHOLECALCIFEROL [Concomitant]
     Active Substance: CHOLECALCIFEROL
     Dosage: UNK, ONCE PER DAY (DAILY)

REACTIONS (10)
  - Neck pain [Recovered/Resolved]
  - Arthralgia [Recovered/Resolved]
  - Pain [Recovered/Resolved]
  - Insomnia [Unknown]
  - Ageusia [Recovered/Resolved]
  - Myalgia [Recovered/Resolved]
  - Taste disorder [Recovered/Resolved]
  - Nasopharyngitis [Unknown]
  - COVID-19 [Unknown]
  - Product use issue [Unknown]

NARRATIVE: CASE EVENT DATE: 20220501
